FAERS Safety Report 6914423-X (Version None)
Quarter: 2010Q3

REPORT INFORMATION
  Report Type: 
  Country: None (occurrence: None)
  Receive Date: 20100809
  Receipt Date: 20100727
  Transmission Date: 20110219
  Serious: Yes (Other)
  Sender: FDA-Public Use
  Company Number: JP-PFIZER INC-2010094203

PATIENT

DRUGS (2)
  1. PROVERA [Suspect]
     Dosage: UNK
     Route: 048
  2. JULINA [Concomitant]

REACTIONS (1)
  - THYROID DISORDER [None]
